FAERS Safety Report 5453431-5 (Version None)
Quarter: 2007Q3

REPORT INFORMATION
  Report Type: 
  Country: None (occurrence: None)
  Receive Date: 20070913
  Receipt Date: 20070905
  Transmission Date: 20080115
  Serious: Yes (Hospitalization)
  Sender: FDA-Public Use
  Company Number: JPI-P-002121

PATIENT
  Age: 29 Year
  Sex: Female
  Weight: 65.318 kg

DRUGS (9)
  1. XYREM [Suspect]
     Indication: NARCOLEPSY
     Dosage: 7.5 GM (3.75 GM, 2 IN 1 D), ORAL;3.75 GM (3.75 GM,1 IN E D),ORAL; 4 GM (4 GM, 1 IN 1 D), ORAL
     Route: 048
     Dates: start: 20070701, end: 20070816
  2. XYREM [Suspect]
     Indication: NARCOLEPSY
     Dosage: 7.5 GM (3.75 GM, 2 IN 1 D), ORAL;3.75 GM (3.75 GM,1 IN E D),ORAL; 4 GM (4 GM, 1 IN 1 D), ORAL
     Route: 048
     Dates: start: 20070817, end: 20070902
  3. XYREM [Suspect]
     Indication: NARCOLEPSY
     Dosage: 7.5 GM (3.75 GM, 2 IN 1 D), ORAL;3.75 GM (3.75 GM,1 IN E D),ORAL; 4 GM (4 GM, 1 IN 1 D), ORAL
     Route: 048
     Dates: start: 20070817, end: 20070902
  4. XYREM [Suspect]
     Indication: NARCOLEPSY
     Dosage: 7.5 GM (3.75 GM, 2 IN 1 D), ORAL;3.75 GM (3.75 GM,1 IN E D),ORAL; 4 GM (4 GM, 1 IN 1 D), ORAL
     Route: 048
     Dates: start: 20070903, end: 20070903
  5. ALCOHOL (ETHANOL) [Suspect]
     Indication: DRUG USE FOR UNKNOWN INDICATION
  6. COCAINE (COCAINE) [Suspect]
     Indication: DRUG USE FOR UNKNOWN INDICATION
  7. OPIATES [Suspect]
     Indication: DRUG USE FOR UNKNOWN INDICATION
  8. METHYLPHENIDATE HCL [Concomitant]
  9. TOPIRAMATE [Concomitant]

REACTIONS (2)
  - BLOOD ALCOHOL INCREASED [None]
  - RESPIRATORY FAILURE [None]
